FAERS Safety Report 5179343-2 (Version None)
Quarter: 2006Q4

REPORT INFORMATION
  Report Type: 
  Country: None (occurrence: None)
  Receive Date: 20061219
  Receipt Date: 20061215
  Transmission Date: 20070319
  Serious: Yes (Hospitalization)
  Sender: FDA-Public Use
  Company Number: FR-GLAXOSMITHKLINE-B0450918A

PATIENT
  Age: 8 Year
  Sex: Male

DRUGS (7)
  1. FORTUM [Suspect]
     Indication: CHEST X-RAY ABNORMAL
     Route: 042
  2. CIPROFLOXACIN [Suspect]
     Route: 065
  3. TAZOCILLINE [Suspect]
     Route: 042
  4. ZYVOX [Suspect]
     Route: 065
  5. AMIKACIN [Suspect]
     Route: 042
  6. VANCOMYCIN [Suspect]
     Route: 042
  7. TIENAM [Suspect]
     Route: 065

REACTIONS (7)
  - HYPERSENSITIVITY [None]
  - PRURITUS [None]
  - PYREXIA [None]
  - SERUM SICKNESS [None]
  - SKIN EXFOLIATION [None]
  - TOXIC SKIN ERUPTION [None]
  - URTICARIA [None]
